FAERS Safety Report 21242408 (Version 1)
Quarter: 2022Q3

REPORT INFORMATION
  Report Type: Other
  Country: CN (occurrence: None)
  Receive Date: 20220823
  Receipt Date: 20220823
  Transmission Date: 20221026
  Serious: Yes (Other)
  Sender: FDA-Public Use
  Company Number: CN-ROCHE-3162127

PATIENT
  Age: 39 Year
  Sex: Male

DRUGS (2)
  1. CAPECITABINE [Suspect]
     Active Substance: CAPECITABINE
     Indication: Metastatic squamous cell carcinoma
     Dosage: RECEIVED 2 CYCLES OF SECOND-LINE CHEMOTHERAPY
     Route: 065
  2. NEDAPLATIN [Concomitant]
     Active Substance: NEDAPLATIN
     Indication: Metastatic squamous cell carcinoma
     Dosage: RECEIVED 2 CYCLES OF SECOND-LINE CHEMOTHERAPY

REACTIONS (1)
  - Disease progression [Recovered/Resolved]

NARRATIVE: CASE EVENT DATE: 20190601
